FAERS Safety Report 23515415 (Version 4)
Quarter: 2025Q4

REPORT INFORMATION
  Report Type: Spontaneous
  Country: GB (occurrence: GB)
  Receive Date: 20240213
  Receipt Date: 20251029
  Transmission Date: 20260117
  Serious: Yes (Hospitalization)
  Sender: TEVA
  Company Number: GB-BAXTER-2024BAX010373

PATIENT
  Age: 38 Year
  Sex: Female

DRUGS (30)
  1. COLISTIN SULFATE [Suspect]
     Active Substance: COLISTIN SULFATE
     Indication: Condition aggravated
     Dosage: 2 MU THRICE A DAY
     Route: 042
  2. COLISTIN SULFATE [Suspect]
     Active Substance: COLISTIN SULFATE
     Indication: Condition aggravated
     Dosage: 2 MU THRICE A DAY, AS A DUAL THERAPY ALONGSIDE FOSFOMYCIN
     Route: 042
  3. COLISTIN SULFATE [Suspect]
     Active Substance: COLISTIN SULFATE
     Indication: Condition aggravated
     Dosage: 2 MU THRICE A DAY
     Route: 042
     Dates: start: 20231130
  4. FOSFOMYCIN [Suspect]
     Active Substance: FOSFOMYCIN
     Indication: Infection
     Dosage: TIME INTERVAL: 0.33333333 DAYS: AS A DUAL THERAPY ALONGSIDE 340 MG TOBRAMYCIN AND 2 MU COLOMYCIN
     Route: 042
  5. FOSFOMYCIN [Suspect]
     Active Substance: FOSFOMYCIN
     Indication: Infection
     Dosage: TIME INTERVAL: 0.33333333 DAYS: AS A DUAL THERAPY ALONGSIDE 2 MU COLOMYCIN
     Route: 042
  6. FOSFOMYCIN [Suspect]
     Active Substance: FOSFOMYCIN
     Indication: Infection
     Dosage: TIME INTERVAL: 0.33333333 DAYS: AS A DUAL THERAPY ALONGSIDE 2 MU COLOMYCIN
     Route: 042
  7. FOSFOMYCIN [Suspect]
     Active Substance: FOSFOMYCIN
     Indication: Infection
     Dosage: TIME INTERVAL: 0.33333333 DAYS: AS A DUAL THERAPY ALONGSIDE 2 MU COLOMYCIN
     Route: 042
  8. FOSFOMYCIN [Suspect]
     Active Substance: FOSFOMYCIN
     Indication: Infection
     Dosage: TIME INTERVAL: 0.33333333 DAYS: AS A DUAL THERAPY ALONGSIDE 2 MU COLOMYCIN
     Route: 042
  9. FOSFOMYCIN [Suspect]
     Active Substance: FOSFOMYCIN
     Indication: Infection
     Dosage: TIME INTERVAL: 0.33333333 DAYS: AS A DUAL THERAPY ALONGSIDE 340 MG TOBRAMYCIN AND 2 MU COLOMYCIN
     Route: 042
  10. FOSFOMYCIN [Suspect]
     Active Substance: FOSFOMYCIN
     Indication: Infection
     Dosage: TIME INTERVAL: 0.33333333 DAYS: AS A DUAL THERAPY ALONGSIDE 2 MU COLOMYCIN
     Route: 042
  11. FOSFOMYCIN [Suspect]
     Active Substance: FOSFOMYCIN
     Indication: Infection
     Dosage: TIME INTERVAL: 0.33333333 DAYS
     Route: 042
     Dates: start: 20231130
  12. FOSFOMYCIN [Suspect]
     Active Substance: FOSFOMYCIN
     Indication: Infection
     Dosage: 2 WEEK COURSE
     Route: 042
     Dates: start: 20240229, end: 20240308
  13. FOSFOMYCIN [Suspect]
     Active Substance: FOSFOMYCIN
     Indication: Infection
     Dosage: TIME INTERVAL: 0.33333333 DAYS: AS A DUAL THERAPY ALONGSIDE 340 MG TOBRAMYCIN AND 2 MU COLOMYCIN
     Route: 042
  14. FOSFOMYCIN [Suspect]
     Active Substance: FOSFOMYCIN
     Indication: Infection
     Dosage: TIME INTERVAL: 0.33333333 DAYS: AS A DUAL THERAPY ALONGSIDE 340 MG TOBRAMYCIN AND 2 MU COLOMYCIN
     Route: 042
  15. FOSFOMYCIN [Suspect]
     Active Substance: FOSFOMYCIN
     Indication: Infection
     Dosage: TIME INTERVAL: 0.33333333 DAYS
     Route: 042
     Dates: start: 20231130
  16. FOSFOMYCIN [Suspect]
     Active Substance: FOSFOMYCIN
     Indication: Infection
     Dosage: 2 WEEKS COURSE
     Route: 065
     Dates: start: 20240926, end: 20241008
  17. FOSFOMYCIN [Suspect]
     Active Substance: FOSFOMYCIN
     Indication: Infection
     Dosage: 2 WEEKS IN TOTAL TO COMPLETE AT HOME
     Route: 042
     Dates: start: 20231223, end: 20240102
  18. TOBRAMYCIN [Suspect]
     Active Substance: TOBRAMYCIN
     Indication: Cystic fibrosis
     Dosage: AS A DUAL THERAPY ALONGSIDE FOSFOMYCIN
     Route: 042
  19. TOBRAMYCIN [Suspect]
     Active Substance: TOBRAMYCIN
     Indication: Cystic fibrosis
     Dosage: 2 WEEK COURSE
     Route: 042
     Dates: start: 20240229, end: 20240308
  20. TOBRAMYCIN [Suspect]
     Active Substance: TOBRAMYCIN
     Indication: Cystic fibrosis
     Dosage: 330 MG, OD, (2 WEEKS IN TOTAL TO COMPLETE AT HOME)
     Route: 042
     Dates: start: 20231223, end: 20240102
  21. TOBRAMYCIN [Suspect]
     Active Substance: TOBRAMYCIN
     Indication: Cystic fibrosis
     Dosage: 2 WEEKS COURSE
     Route: 065
     Dates: start: 20240926, end: 20241008
  22. DEXTROSE [Suspect]
     Active Substance: DEXTROSE MONOHYDRATE
     Indication: Medication dilution
     Dosage: TIME INTERVAL: 0.33333333 DAYS: BAXTER HEALTHCARE
     Route: 042
  23. DEXTROSE [Suspect]
     Active Substance: DEXTROSE MONOHYDRATE
     Indication: Medication dilution
     Dosage: TIME INTERVAL: 0.33333333 DAYS: BAXTER HEALTHCARE
     Route: 042
  24. DEXTROSE [Suspect]
     Active Substance: DEXTROSE MONOHYDRATE
     Indication: Medication dilution
     Dosage: TIME INTERVAL: 0.33333333 DAYS: BAXTER HEALTHCARE
     Route: 042
  25. DEXTROSE [Suspect]
     Active Substance: DEXTROSE MONOHYDRATE
     Indication: Medication dilution
     Dosage: TIME INTERVAL: 0.33333333 DAYS: BAXTER HEALTHCARE
     Route: 042
  26. DEXTROSE [Suspect]
     Active Substance: DEXTROSE MONOHYDRATE
     Indication: Medication dilution
     Dosage: TIME INTERVAL: 0.33333333 DAYS: BAXTER HEALTHCARE
     Route: 042
  27. DEXTROSE [Suspect]
     Active Substance: DEXTROSE MONOHYDRATE
     Indication: Medication dilution
     Dosage: TIME INTERVAL: 0.33333333 DAYS: BAXTER HEALTHCARE
     Route: 042
  28. DEXTROSE [Suspect]
     Active Substance: DEXTROSE MONOHYDRATE
     Indication: Medication dilution
     Dosage: TIME INTERVAL: 0.33333333 DAYS: BAXTER HEALTHCARE
     Route: 042
  29. DEXTROSE [Suspect]
     Active Substance: DEXTROSE MONOHYDRATE
     Indication: Medication dilution
     Dosage: TIME INTERVAL: 0.33333333 DAYS: BAXTER HEALTHCARE
     Route: 042
  30. DEXTROSE [Suspect]
     Active Substance: DEXTROSE MONOHYDRATE
     Indication: Medication dilution
     Dosage: TIME INTERVAL: 0.33333333 DAYS: BAXTER HEALTHCARE
     Route: 042

REACTIONS (13)
  - General physical health deterioration [Unknown]
  - Malaise [Unknown]
  - Product preparation error [Unknown]
  - Underdose [Unknown]
  - Product dispensing error [Unknown]
  - Product appearance confusion [Unknown]
  - Product strength confusion [Unknown]
  - Manufacturing laboratory analytical testing issue [Unknown]
  - Haemoptysis [Unknown]
  - Dyspnoea [Unknown]
  - Nutritional condition abnormal [Unknown]
  - Oxygen saturation decreased [Unknown]
  - Weight decreased [Unknown]

NARRATIVE: CASE EVENT DATE: 20231223
